FAERS Safety Report 7002786-9 (Version None)
Quarter: 2010Q3

REPORT INFORMATION
  Report Type: 
  Country: None (occurrence: None)
  Receive Date: 20100920
  Receipt Date: 20100908
  Transmission Date: 20110219
  Serious: Yes (Other)
  Sender: FDA-Public Use
  Company Number: US-WYE-H17425510

PATIENT
  Sex: Female
  Weight: 64.92 kg

DRUGS (8)
  1. PRISTIQ [Suspect]
     Indication: DEPRESSION
     Dates: start: 20090101, end: 20100101
  2. PRISTIQ [Suspect]
     Dosage: SKIPS DAYS OR STOPS THERAPY ABRUPTLY
     Dates: start: 20100101, end: 20100101
  3. VITAMIN D3 [Concomitant]
     Indication: BONE DENSITY DECREASED
     Dosage: 4000 UNITS, FREQUENCY UNKNOWN
  4. PROPRANOLOL [Concomitant]
  5. CHONDROITIN SULFATE SODIUM [Concomitant]
  6. MAGNESIUM [Concomitant]
     Dosage: 250 MG FREQUENCY UNKNOWN
  7. CALCIUM [Concomitant]
     Indication: BONE DENSITY DECREASED
     Dosage: UNKNOWN
  8. GLUCOSAMINE [Concomitant]
     Dosage: ^MEGA DOSES^

REACTIONS (32)
  - AGGRESSION [None]
  - ANGER [None]
  - APHASIA [None]
  - ARTHROPATHY [None]
  - ASTHENIA [None]
  - CARDIAC FAILURE CONGESTIVE [None]
  - CONDITION AGGRAVATED [None]
  - CONFUSIONAL STATE [None]
  - CRYING [None]
  - DECREASED INTEREST [None]
  - DRUG INEFFECTIVE [None]
  - DRUG WITHDRAWAL SYNDROME [None]
  - DYSKINESIA [None]
  - FATIGUE [None]
  - FEELING ABNORMAL [None]
  - HALLUCINATION [None]
  - INTENTIONAL DRUG MISUSE [None]
  - IRRITABILITY [None]
  - MEMORY IMPAIRMENT [None]
  - MUSCLE SPASMS [None]
  - NERVOUSNESS [None]
  - NIGHTMARE [None]
  - PALPITATIONS [None]
  - PANIC REACTION [None]
  - PARAESTHESIA [None]
  - REPETITIVE SPEECH [None]
  - RHEUMATOID ARTHRITIS [None]
  - SLUGGISHNESS [None]
  - SOCIAL AVOIDANT BEHAVIOUR [None]
  - SPEECH DISORDER [None]
  - SUICIDAL IDEATION [None]
  - WEIGHT INCREASED [None]
